FAERS Safety Report 4363898-1 (Version None)
Quarter: 2004Q2

REPORT INFORMATION
  Report Type: 
  Country: None (occurrence: None)
  Receive Date: 20040518
  Receipt Date: 20040303
  Transmission Date: 20050107
  Serious: No
  Sender: FDA-Public Use
  Company Number: PHEH2003US10343

PATIENT
  Age: 51 Year
  Sex: Male
  Weight: 163.3 kg

DRUGS (10)
  1. GLEEVEC [Suspect]
     Indication: CHRONIC MYELOID LEUKAEMIA
     Dosage: 400 MG, QD, ORAL
     Route: 048
  2. GLUCOPHAGE ^AB1C^ [Concomitant]
  3. GLUCOTROL XL (GLIPEZIDE) [Concomitant]
  4. VERAPAMIL [Concomitant]
  5. ATENOLOL [Concomitant]
  6. HYZAAR [Concomitant]
  7. LASIX [Concomitant]
  8. K-DUR 10 [Concomitant]
  9. ZOLOFT [Concomitant]
  10. DIOXIN [Concomitant]

REACTIONS (1)
  - BLOOD GLUCOSE INCREASED [None]
